FAERS Safety Report 6144223-2 (Version None)
Quarter: 2009Q2

REPORT INFORMATION
  Report Type: 
  Country: None (occurrence: None)
  Receive Date: 20090406
  Receipt Date: 20090330
  Transmission Date: 20091009
  Serious: Yes (Other)
  Sender: FDA-Public Use
  Company Number: PHHY2009US12037

PATIENT
  Age: 77 Year
  Sex: Male

DRUGS (6)
  1. ZOLEDRONIC ACID [Suspect]
     Indication: MULTIPLE MYELOMA
     Dosage: 4 MG, QMO
     Route: 042
  2. ZOLEDRONIC ACID [Suspect]
     Indication: PROSTATE CANCER
  3. PAMIDRONATE DISODIUM [Suspect]
     Dosage: 30 MG, QMO
     Route: 042
  4. THALIDOMIDE [Concomitant]
  5. PREDNISONE [Concomitant]
  6. FLUCONAZOLE [Concomitant]

REACTIONS (6)
  - BONE DISORDER [None]
  - DERMAL SINUS [None]
  - OSTEONECROSIS [None]
  - PRIMARY SEQUESTRUM [None]
  - SWELLING [None]
  - TOOTH EXTRACTION [None]
